FAERS Safety Report 9524366 (Version 1)
Quarter: 2013Q3

REPORT INFORMATION
  Report Type: Spontaneous
  Country: BR (occurrence: None)
  Receive Date: 20130912
  Receipt Date: 20130912
  Transmission Date: 20140515
  Serious: Yes (Hospitalization)
  Sender: FDA-Public Use
  Company Number: 2013P1018933

PATIENT
  Age: 45 Year
  Sex: Female

DRUGS (2)
  1. METHIMAZOLE [Suspect]
     Indication: HYPERTHYROIDISM
  2. CAPTOPRIL [Concomitant]

REACTIONS (6)
  - Psychotic disorder [None]
  - Paranoia [None]
  - Delusion [None]
  - Insomnia [None]
  - Agitation [None]
  - Hypothyroidism [None]
